FAERS Safety Report 8902582 (Version 4)
Quarter: 2015Q3

REPORT INFORMATION
  Report Type: Spontaneous
  Country: GB (occurrence: GB)
  Receive Date: 20121112
  Receipt Date: 20150925
  Transmission Date: 20151125
  Serious: Yes (Death, Hospitalization, Other)
  Sender: FDA-Public Use
  Company Number: PHHY2012GB103033

PATIENT
  Age: 70 Year
  Sex: Female
  Weight: 82.6 kg

DRUGS (10)
  1. SODIUM VALPROATE [Concomitant]
     Active Substance: VALPROATE SODIUM
     Indication: PRODUCT USED FOR UNKNOWN INDICATION
     Route: 065
  2. LASIX [Concomitant]
     Active Substance: FUROSEMIDE
     Indication: PRODUCT USED FOR UNKNOWN INDICATION
     Route: 065
  3. LORAZEPAM. [Concomitant]
     Active Substance: LORAZEPAM
     Indication: PRODUCT USED FOR UNKNOWN INDICATION
     Route: 065
  4. DIAZEPAM. [Suspect]
     Active Substance: DIAZEPAM
     Indication: PRODUCT USED FOR UNKNOWN INDICATION
     Route: 065
  5. RISPERIDONE. [Suspect]
     Active Substance: RISPERIDONE
     Indication: PRODUCT USED FOR UNKNOWN INDICATION
     Route: 065
  6. MIRTAZAPINE. [Suspect]
     Active Substance: MIRTAZAPINE
     Indication: PRODUCT USED FOR UNKNOWN INDICATION
     Route: 065
  7. NITROFURANTOIN. [Concomitant]
     Active Substance: NITROFURANTOIN
     Indication: PRODUCT USED FOR UNKNOWN INDICATION
     Route: 065
  8. PREGABALIN. [Concomitant]
     Active Substance: PREGABALIN
     Indication: PRODUCT USED FOR UNKNOWN INDICATION
     Route: 065
  9. DONEPEZIL. [Concomitant]
     Active Substance: DONEPEZIL
     Indication: PRODUCT USED FOR UNKNOWN INDICATION
     Route: 065
  10. PROCYCLIDINE [Concomitant]
     Active Substance: PROCYCLIDINE
     Indication: PRODUCT USED FOR UNKNOWN INDICATION
     Route: 065

REACTIONS (61)
  - Bedridden [Fatal]
  - Frustration [Fatal]
  - Paralysis [Fatal]
  - Muscle rigidity [Fatal]
  - Dyspnoea [Fatal]
  - Agitation [Fatal]
  - Balance disorder [Fatal]
  - Back pain [Fatal]
  - Swelling face [Fatal]
  - Cholecystitis [Fatal]
  - Chorea [Fatal]
  - Iron deficiency [Fatal]
  - Salivary hypersecretion [Fatal]
  - Pallor [Fatal]
  - Tongue coated [Fatal]
  - Muscle spasticity [Fatal]
  - Incontinence [Fatal]
  - Confusional state [Fatal]
  - Somnolence [Fatal]
  - Catatonia [Fatal]
  - Neuroleptic malignant syndrome [Fatal]
  - Mental status changes [Fatal]
  - Communication disorder [Fatal]
  - Extensor plantar response [Fatal]
  - Gait disturbance [Fatal]
  - Tachycardia [Fatal]
  - Autonomic nervous system imbalance [Fatal]
  - Decreased appetite [Fatal]
  - Skin tightness [Fatal]
  - Tongue dry [Fatal]
  - Stupor [Fatal]
  - Mucosal dryness [Fatal]
  - Aphasia [Fatal]
  - Pyrexia [Fatal]
  - Sedation [Fatal]
  - Feeding disorder [Fatal]
  - Peripheral swelling [Fatal]
  - Hypokinesia [Fatal]
  - Dysphagia [Fatal]
  - Coma [Fatal]
  - Liver function test abnormal [Fatal]
  - General physical health deterioration [Fatal]
  - Tremor [Fatal]
  - Dyskinesia [Fatal]
  - Drug interaction [Fatal]
  - Seizure [Fatal]
  - Local swelling [Fatal]
  - Fluid intake reduced [Fatal]
  - Hyporesponsive to stimuli [Fatal]
  - Opisthotonus [Fatal]
  - Essential hypertension [Fatal]
  - Hyperhidrosis [Fatal]
  - Cold sweat [Fatal]
  - Coating in mouth [Fatal]
  - Blood pressure fluctuation [Fatal]
  - Pain [Fatal]
  - Sleep disorder [Fatal]
  - Oculogyric crisis [Fatal]
  - Dehydration [Fatal]
  - Rhabdomyolysis [Fatal]
  - Urinary tract infection [Fatal]
